FAERS Safety Report 21920079 (Version 1)
Quarter: 2023Q1

REPORT INFORMATION
  Report Type: Spontaneous
  Country: GB (occurrence: DK)
  Receive Date: 20230127
  Receipt Date: 20230127
  Transmission Date: 20230417
  Serious: Yes (Other)
  Sender: FDA-Public Use
  Company Number: None

PATIENT

DRUGS (7)
  1. LATUDA [Suspect]
     Active Substance: LURASIDONE HYDROCHLORIDE
     Indication: Psychotic disorder
     Dosage: STRENGTH: 74 MG
     Route: 048
     Dates: start: 20220318, end: 20221018
  2. STRIVERDI RESPIMAT [Concomitant]
     Active Substance: OLODATEROL HYDROCHLORIDE
     Indication: Asthma
     Dosage: UNK
     Route: 065
     Dates: start: 20210911
  3. PANTOPRAZOLE SODIUM [Concomitant]
     Active Substance: PANTOPRAZOLE SODIUM
     Indication: Gastrooesophageal reflux disease
     Dosage: UNK
     Route: 065
     Dates: start: 20211209
  4. VAGIFEM [Concomitant]
     Active Substance: ESTRADIOL
     Indication: Blood oestrogen decreased
     Dosage: UNK
     Route: 065
     Dates: start: 20210519
  5. ZONISAMIDE TEVA [Concomitant]
     Indication: Epilepsy
     Dosage: UNK
     Route: 065
     Dates: start: 20190620
  6. CALCIUM\VITAMIN D [Concomitant]
     Active Substance: CALCIUM\VITAMIN D
     Indication: Mineral supplementation
     Dosage: UNK
     Route: 065
     Dates: start: 20220108
  7. ENALAPRIL MALEATE [Concomitant]
     Active Substance: ENALAPRIL MALEATE
     Indication: Hypertension
     Dosage: UNK
     Route: 065
     Dates: start: 20180116

REACTIONS (6)
  - Tardive dyskinesia [Recovering/Resolving]
  - Tremor [Recovering/Resolving]
  - Cogwheel rigidity [Recovering/Resolving]
  - Akathisia [Recovering/Resolving]
  - Extrapyramidal disorder [Recovering/Resolving]
  - Off label use [Recovered/Resolved]

NARRATIVE: CASE EVENT DATE: 20221018
